FAERS Safety Report 13434302 (Version 1)
Quarter: 2017Q2

REPORT INFORMATION
  Report Type: Spontaneous
  Country: US (occurrence: US)
  Receive Date: 20170412
  Receipt Date: 20170412
  Transmission Date: 20170830
  Serious: No
  Sender: FDA-Public Use
  Company Number: None

PATIENT
  Age: 53 Year
  Sex: Female

DRUGS (1)
  1. TACROLIMUS 0.5MG DR REDDY^S [Suspect]
     Active Substance: TACROLIMUS
     Indication: RENAL TRANSPLANT
     Route: 048
     Dates: start: 20161121

REACTIONS (6)
  - Headache [None]
  - Condition aggravated [None]
  - Abdominal discomfort [None]
  - Obsessive-compulsive disorder [None]
  - Tremor [None]
  - Product substitution issue [None]

NARRATIVE: CASE EVENT DATE: 20161121
